FAERS Safety Report 6584471-0 (Version None)
Quarter: 2010Q1

REPORT INFORMATION
  Report Type: 
  Country: None (occurrence: None)
  Receive Date: 20100212
  Receipt Date: 20100212
  Transmission Date: 20100710
  Serious: Yes (Hospitalization)
  Sender: FDA-Public Use
  Company Number: None

PATIENT
  Age: 83 Year
  Sex: Male

DRUGS (1)
  1. GALANTAMINE HYDROBROMIDE [Suspect]
     Indication: DEMENTIA ALZHEIMER'S TYPE
     Dosage: 16 MG EVERY DAY PO
     Route: 048
     Dates: start: 20090921, end: 20091028

REACTIONS (7)
  - CARDIOMEGALY [None]
  - CEREBRAL INFARCTION [None]
  - CEREBRAL ISCHAEMIA [None]
  - CORTICAL LAMINAR NECROSIS [None]
  - CYST [None]
  - GRANULOMA [None]
  - HAEMORRHAGIC CEREBRAL INFARCTION [None]
